FAERS Safety Report 5752696-X (Version None)
Quarter: 2008Q2

REPORT INFORMATION
  Report Type: 
  Country: None (occurrence: None)
  Receive Date: 20080529
  Receipt Date: 20080529
  Transmission Date: 20081010
  Serious: Yes (Death)
  Sender: FDA-Public Use
  Company Number: KR-WYE-H04270808

PATIENT
  Sex: Male
  Weight: 48 kg

DRUGS (3)
  1. RAPAMUNE [Suspect]
     Indication: PROPHYLAXIS AGAINST TRANSPLANT REJECTION
     Route: 048
     Dates: start: 20071026
  2. INSULIN [Concomitant]
     Indication: DIABETES MELLITUS
     Dosage: 100 IU/ML - 3 ML
     Route: 058
     Dates: start: 20070823
  3. PREDNISOLONE [Concomitant]
     Indication: PROPHYLAXIS AGAINST TRANSPLANT REJECTION
     Route: 048
     Dates: start: 20070823

REACTIONS (1)
  - DEATH [None]
